FAERS Safety Report 11348195 (Version 1)
Quarter: 2015Q3

REPORT INFORMATION
  Report Type: Spontaneous
  Country: GB (occurrence: GB)
  Receive Date: 20150806
  Receipt Date: 20150806
  Transmission Date: 20151125
  Serious: Yes (Hospitalization)
  Sender: FDA-Public Use
  Company Number: GB-PFIZER INC-2015257865

PATIENT
  Age: 48 Year
  Sex: Male
  Weight: 148 kg

DRUGS (14)
  1. LINEZOLID. [Suspect]
     Active Substance: LINEZOLID
     Dosage: 600 MG, 2X/DAY
     Route: 048
     Dates: start: 20150217, end: 20150707
  2. ORAMORPH [Concomitant]
     Active Substance: MORPHINE SULFATE
     Dosage: UNK
  3. AMLODIPINE [Concomitant]
     Active Substance: AMLODIPINE BESYLATE
     Dosage: UNK
  4. DIPROBASE [Concomitant]
     Active Substance: CHLOROCRESOL
     Dosage: UNK
  5. GLICLAZIDE [Concomitant]
     Active Substance: GLICLAZIDE
  6. PRAMIPEXOLE. [Concomitant]
     Active Substance: PRAMIPEXOLE
     Dosage: UNK
  7. SALBUTAMOL [Concomitant]
     Active Substance: ALBUTEROL
     Dosage: UNK
  8. OMEPRAZOLE. [Concomitant]
     Active Substance: OMEPRAZOLE
     Dosage: UNK
  9. AMITRIPTYLINE [Concomitant]
     Active Substance: AMITRIPTYLINE
     Dosage: UNK
  10. BISOPROLOL [Concomitant]
     Active Substance: BISOPROLOL
     Dosage: UNK
  11. FERROUS FUMARATE [Concomitant]
     Active Substance: FERROUS FUMARATE
     Dosage: UNK
  12. WARFARIN [Concomitant]
     Active Substance: WARFARIN
     Dosage: UNK
  13. RAMIPRIL. [Concomitant]
     Active Substance: RAMIPRIL
     Dosage: UNK
  14. COCODAMOL [Concomitant]
     Active Substance: ACETAMINOPHEN\CODEINE PHOSPHATE
     Dosage: UNK

REACTIONS (3)
  - Wheezing [Unknown]
  - Dyspnoea [Unknown]
  - Anaemia [Not Recovered/Not Resolved]
